FAERS Safety Report 6860045-9 (Version None)
Quarter: 2010Q3

REPORT INFORMATION
  Report Type: 
  Country: None (occurrence: None)
  Receive Date: 20100720
  Receipt Date: 20100712
  Transmission Date: 20110219
  Serious: Yes (Other)
  Sender: FDA-Public Use
  Company Number: US-PFIZER INC-2010087317

PATIENT
  Sex: Male
  Weight: 100 kg

DRUGS (3)
  1. CELEBREX [Suspect]
     Indication: ARTHROPATHY
     Dosage: 200 MG, 2X/DAY
     Route: 048
     Dates: start: 20100428, end: 20100601
  2. LOTREL [Concomitant]
     Indication: HYPERTENSION
     Dosage: [AMLODIPINE 5MG]/[BENAZEPRIL 40 MG], UNK
  3. SYNTHROID [Concomitant]
     Indication: THYROID DISORDER
     Dosage: 1 UG, UNK

REACTIONS (2)
  - JOINT SWELLING [None]
  - OEDEMA PERIPHERAL [None]
